FAERS Safety Report 9258277 (Version 1)
Quarter: 2013Q1

REPORT INFORMATION
  Report Type: Spontaneous
  Country: US (occurrence: None)
  Receive Date: 20121212
  Receipt Date: 20121212
  Transmission Date: 20140127
  Serious: No
  Sender: FDA-Public Use
  Company Number: 1210USA001997

PATIENT
  Age: 50 Year
  Sex: Male

DRUGS (3)
  1. VICTRELIS (BOCEPREVIR) CAPSULE [Suspect]
     Indication: HEPATITIS C
     Dosage: FOUR 200 MG CAPSULES EVERY 8 HRS, ORAL
     Route: 048
     Dates: start: 20120913
  2. RIBAPAK (RIBAVIRIN) [Suspect]
     Indication: HEPATITIS C
  3. PEGASYS (PEGINTERFERON ALFA-2A) [Suspect]
     Indication: HEPATITIS C

REACTIONS (4)
  - Emotional disorder [None]
  - Skin exfoliation [None]
  - Sexual dysfunction [None]
  - Dry skin [None]
